FAERS Safety Report 4286251-8 (Version None)
Quarter: 2004Q1

REPORT INFORMATION
  Report Type: 
  Country: None (occurrence: None)
  Receive Date: 20040115
  Receipt Date: 20030618
  Transmission Date: 20041129
  Serious: Yes (Death, Hospitalization)
  Sender: FDA-Public Use
  Company Number: NSADSS2003024978

PATIENT
  Age: 67 Year
  Sex: Female

DRUGS (2)
  1. DOXIL [Suspect]
     Indication: OVARIAN CANCER
     Dosage: 65 MG, 1 IN 4 WEEK, INTRAVENOUS DRIP
     Route: 041
     Dates: start: 20030317, end: 20030317
  2. UNSPECIFIED PAIN MEDICATION (ANALGESICS) [Concomitant]

REACTIONS (1)
  - CONDITION AGGRAVATED [None]
